FAERS Safety Report 24337306 (Version 1)
Quarter: 2024Q3

REPORT INFORMATION
  Report Type: Spontaneous
  Country: RO (occurrence: RO)
  Receive Date: 20240919
  Receipt Date: 20240919
  Transmission Date: 20241017
  Serious: Yes (Other)
  Sender: UCB
  Company Number: RO-UCBSA-2024047856

PATIENT
  Sex: Female

DRUGS (9)
  1. LEVETIRACETAM [Suspect]
     Active Substance: LEVETIRACETAM
     Indication: Epilepsy
     Dosage: UNK
  2. LEVETIRACETAM [Suspect]
     Active Substance: LEVETIRACETAM
     Indication: Gene mutation
  3. LEVETIRACETAM [Suspect]
     Active Substance: LEVETIRACETAM
     Indication: Off label use
  4. VALPROIC ACID [Concomitant]
     Active Substance: VALPROIC ACID
     Indication: Epilepsy
     Dosage: UNK
  5. VALPROIC ACID [Concomitant]
     Active Substance: VALPROIC ACID
     Indication: Gene mutation
  6. LAMOTRIGINE [Concomitant]
     Active Substance: LAMOTRIGINE
     Indication: Epilepsy
     Dosage: UNK
  7. LAMOTRIGINE [Concomitant]
     Active Substance: LAMOTRIGINE
     Indication: Gene mutation
  8. CLONAZEPAM [Concomitant]
     Active Substance: CLONAZEPAM
     Indication: Epilepsy
     Dosage: UNK
  9. CLONAZEPAM [Concomitant]
     Active Substance: CLONAZEPAM
     Indication: Gene mutation

REACTIONS (2)
  - Seizure [Unknown]
  - Off label use [Unknown]
